FAERS Safety Report 9447547 (Version 1)
Quarter: 2013Q3

REPORT INFORMATION
  Report Type: Spontaneous
  Country: GB (occurrence: None)
  Receive Date: 20130805
  Receipt Date: 20130805
  Transmission Date: 20140515
  Serious: Yes (Other)
  Sender: FDA-Public Use
  Company Number: FK201302832

PATIENT
  Age: 56 Year
  Sex: Female

DRUGS (8)
  1. FUROSEMIDE [Suspect]
     Indication: PRODUCT USED FOR UNKNOWN INDICATION
  2. DILTIAZEM [Concomitant]
  3. STEROIDS (STEROIDS ANTIBACTERIAL) [Concomitant]
  4. AMOXCILLIN (AMOXCILLIN) [Concomitant]
  5. FLUTICASONE (FLUTICASONE) [Concomitant]
  6. SALBUTAMOL (SALBUTAMOL) [Concomitant]
  7. OMEPRAZOLE (OMEPRAZOLE) [Concomitant]
  8. SIMVASTATIN (SIMVASTATIN) [Concomitant]

REACTIONS (3)
  - Lobar pneumonia [None]
  - Asthma [None]
  - Metabolic alkalosis [None]
